FAERS Safety Report 15336631 (Version 1)
Quarter: 2018Q3

REPORT INFORMATION
  Report Type: Report from Study
  Country: US (occurrence: US)
  Receive Date: 20180830
  Receipt Date: 20180830
  Transmission Date: 20181010
  Serious: No
  Sender: FDA-Public Use
  Company Number: PHEH2018US036232

PATIENT
  Age: 47 Year
  Sex: Female

DRUGS (1)
  1. GILENYA [Suspect]
     Active Substance: FINGOLIMOD HYDROCHLORIDE
     Indication: MULTIPLE SCLEROSIS
     Dosage: 0.5 MG, QD
     Route: 048
     Dates: start: 20180801

REACTIONS (10)
  - Anxiety [Unknown]
  - Insomnia [Unknown]
  - Pain [Unknown]
  - Fatigue [Unknown]
  - Amnesia [Unknown]
  - Peripheral swelling [Unknown]
  - Dry mouth [Unknown]
  - Depression [Unknown]
  - Mood swings [Unknown]
  - Weight increased [Unknown]

NARRATIVE: CASE EVENT DATE: 20180801
